FAERS Safety Report 4689206-4 (Version None)
Quarter: 2005Q2

REPORT INFORMATION
  Report Type: 
  Country: None (occurrence: None)
  Receive Date: 20050608
  Receipt Date: 20050203
  Transmission Date: 20051028
  Serious: No
  Sender: FDA-Public Use
  Company Number: 2005-BP-00570BP

PATIENT
  Age: 77 Year
  Sex: Male

DRUGS (11)
  1. SPIRIVA [Suspect]
     Indication: CHRONIC OBSTRUCTIVE PULMONARY DISEASE
     Dosage: 18 MCG (18 MCG, 1 CAPSULE QD), IH
     Route: 055
     Dates: start: 20040101
  2. SPIRIVA [Suspect]
     Indication: EMPHYSEMA
  3. OMEPRAZOLE [Concomitant]
  4. BEXTRA [Concomitant]
  5. PLAVIX [Concomitant]
  6. TERAZOSIN(TERAZOSIN) [Concomitant]
  7. ATENOLOL [Concomitant]
  8. ZOCOR [Concomitant]
  9. PAROXETINE HCL [Concomitant]
  10. ACETYLSALICYLIC ACID SRT [Concomitant]
  11. NASONEX [Concomitant]

REACTIONS (6)
  - DRUG INEFFECTIVE [None]
  - DYSPNOEA [None]
  - DYSPNOEA EXACERBATED [None]
  - NASOPHARYNGITIS [None]
  - RHINORRHOEA [None]
  - UPPER RESPIRATORY TRACT INFECTION [None]
